FAERS Safety Report 11992818 (Version 1)
Quarter: 2016Q1

REPORT INFORMATION
  Report Type: Spontaneous
  Country: US (occurrence: US)
  Receive Date: 20160203
  Receipt Date: 20160203
  Transmission Date: 20160526
  Serious: No
  Sender: FDA-Public Use
  Company Number: US-UCBSA-2015023193

PATIENT
  Sex: Female

DRUGS (4)
  1. KEPPRA [Suspect]
     Active Substance: LEVETIRACETAM
     Indication: SEIZURE
     Dosage: 250 MG, 2X/DAY (BID)
  2. KEPPRA [Suspect]
     Active Substance: LEVETIRACETAM
     Dosage: UNK
  3. KEPPRA [Suspect]
     Active Substance: LEVETIRACETAM
     Dosage: 3000 MG, ONCE DAILY (QD)
  4. KEPPRA [Suspect]
     Active Substance: LEVETIRACETAM
     Dosage: 1000 MG, 2X/DAY (BID)

REACTIONS (7)
  - Drug tolerance [Unknown]
  - Stress [Unknown]
  - Depression [Unknown]
  - Somnolence [Unknown]
  - Drug ineffective [Unknown]
  - Fatigue [Unknown]
  - Emotional disorder [Unknown]
